FAERS Safety Report 25655859 (Version 2)
Quarter: 2025Q3

REPORT INFORMATION
  Report Type: Spontaneous
  Country: US (occurrence: US)
  Receive Date: 20250807
  Receipt Date: 20250919
  Transmission Date: 20251021
  Serious: No
  Sender: EISAI
  Company Number: US-Eisai-EC-2025-194053

PATIENT
  Age: 84 Year
  Sex: Male

DRUGS (2)
  1. LEQEMBI [Suspect]
     Active Substance: LECANEMAB-IRMB
     Indication: Dementia Alzheimer^s type
     Route: 042
     Dates: start: 20250701
  2. BENADRYL [Suspect]
     Active Substance: DIPHENHYDRAMINE HYDROCHLORIDE
     Indication: Premedication

REACTIONS (2)
  - Fatigue [Unknown]
  - Hypersomnia [Unknown]

NARRATIVE: CASE EVENT DATE: 20250701
